FAERS Safety Report 20027694 (Version 2)
Quarter: 2021Q4

REPORT INFORMATION
  Report Type: Spontaneous
  Country: CN (occurrence: CN)
  Receive Date: 20211103
  Receipt Date: 20211123
  Transmission Date: 20220303
  Serious: Yes (Other)
  Sender: FDA-Public Use
  Company Number: CN-009507513-2110CHN008541

PATIENT
  Age: 56 Year
  Sex: Female
  Weight: 50 kg

DRUGS (8)
  1. KEYTRUDA [Suspect]
     Active Substance: PEMBROLIZUMAB
     Indication: Lung adenocarcinoma stage IV
     Dosage: DOSE: 200 MG, FREQUENCY: ONCE
     Route: 041
     Dates: start: 20210927, end: 20210927
  2. CARBOPLATIN [Suspect]
     Active Substance: CARBOPLATIN
     Indication: Chemotherapy
     Dosage: 0.2G ONCE;FORMULATION: FREEZED-DRYING PREPARATION FOR INJECTION
     Route: 041
     Dates: start: 20210927, end: 20210927
  3. PACLITAXEL [Suspect]
     Active Substance: PACLITAXEL
     Indication: Chemotherapy
     Dosage: 150 MG, ONCE
     Route: 041
     Dates: start: 20210927, end: 20210927
  4. AVASTIN [Suspect]
     Active Substance: BEVACIZUMAB
     Indication: Chemotherapy
     Dosage: 400 MG, ONCE
     Route: 041
     Dates: start: 20210928, end: 20210928
  5. DEXTROSE [Concomitant]
     Active Substance: DEXTROSE
     Indication: Medication dilution
     Dosage: DOSE: 500 ML, ONCE;ROUTE: IV DRIP(ALSO REPORTED AS ^ST^ INTRAVENOUS)
     Route: 041
     Dates: start: 20210927, end: 20210927
  6. SODIUM CHLORIDE [Concomitant]
     Active Substance: SODIUM CHLORIDE
     Indication: Medication dilution
     Dosage: DOSE: 100 ML, ONCE;ROUTE: INTRAVENOUS DRIP (IV DRIP)(ALSO REPORTED AS ^ST^ INTRAVENOUS)
     Route: 041
     Dates: start: 20210927, end: 20210927
  7. SODIUM CHLORIDE [Concomitant]
     Active Substance: SODIUM CHLORIDE
     Dosage: 40 ML, ONCE;ROUTE: INTRAVENOUS DRIP (IV DRIP)(ALSO REPORTED AS ^ST^ INTRAVENOUS INFUSION),
     Route: 041
     Dates: start: 20210927, end: 20210927
  8. SODIUM CHLORIDE [Concomitant]
     Active Substance: SODIUM CHLORIDE
     Dosage: DOSE: 100 ML, ONCE;INTRAVENOUS DRIP (IV DRIP)(ALSO REPORTED AS ^ST^ INTRAVENOUS)
     Route: 041
     Dates: start: 20210928, end: 20210928

REACTIONS (2)
  - Pancytopenia [Recovering/Resolving]
  - Purpura [Recovering/Resolving]

NARRATIVE: CASE EVENT DATE: 20210930
